FAERS Safety Report 9999107 (Version 1)
Quarter: 2014Q1

REPORT INFORMATION
  Report Type: Spontaneous
  Country: ES (occurrence: ES)
  Receive Date: 20140312
  Receipt Date: 20140312
  Transmission Date: 20141002
  Serious: Yes (Hospitalization)
  Sender: FDA-Public Use
  Company Number: ES-JNJFOC-20140303708

PATIENT
  Age: 3 Decade
  Sex: Male

DRUGS (3)
  1. REMICADE [Suspect]
     Indication: CROHN^S DISEASE
     Dosage: DOSE WAS DECREASED
     Route: 042
  2. REMICADE [Suspect]
     Indication: CROHN^S DISEASE
     Dosage: 4 YEARS AGO
     Route: 042
     Dates: start: 2009
  3. MESALAZINE [Concomitant]
     Route: 065

REACTIONS (2)
  - Anal abscess [Recovering/Resolving]
  - Meningitis [Recovering/Resolving]
